FAERS Safety Report 4741414-X (Version None)
Quarter: 2005Q3

REPORT INFORMATION
  Report Type: 
  Country: None (occurrence: None)
  Receive Date: 20050808
  Receipt Date: 20050722
  Transmission Date: 20060218
  Serious: Yes (Hospitalization)
  Sender: FDA-Public Use
  Company Number: US_990421369

PATIENT
  Age: 60 Year
  Sex: Female
  Weight: 86 kg

DRUGS (16)
  1. REGULAR INSULIN [Suspect]
     Indication: DIABETES MELLITUS
     Dosage: 20 U DAY
  2. ILETIN [Suspect]
     Indication: DIABETES MELLITUS
     Dosage: 40 UG DAY
  3. NOVOLIN NPH (INSULIN HUMAN INJECTION, ISOPHANE) [Concomitant]
  4. NOVOLIN R [Concomitant]
  5. LENTE ILETIN II (PORK) [Suspect]
     Indication: DIABETES MELLITUS
  6. ILETIN [Suspect]
     Indication: DIABETES MELLITUS
     Dates: start: 19550101
  7. HUMULIN-HUMAN INSULIN (RDNA) UNKNOWN FORMULATION (HU [Suspect]
     Indication: DIABETES MELLITUS
     Dates: start: 19971101, end: 19980201
  8. HUMALOG MIX 75/25 [Suspect]
     Indication: DIABETES MELLITUS
  9. RELAFEN [Concomitant]
  10. NEURONTIN [Concomitant]
  11. WELLBUTRIN [Concomitant]
  12. TRENTAL (PENTOXIFYLENE) [Concomitant]
  13. DEXADEM [Concomitant]
  14. XANAX (ALPRAZOLAM DUM) [Concomitant]
  15. TRAZODONE (TRAZODONE) [Concomitant]
  16. ULTRAM [Concomitant]

REACTIONS (18)
  - AMNESIA [None]
  - ANXIETY [None]
  - BLOOD GLUCOSE DECREASED [None]
  - BLOOD GLUCOSE FLUCTUATION [None]
  - BLOOD GLUCOSE INCREASED [None]
  - CARDIAC FAILURE CONGESTIVE [None]
  - CONNECTIVE TISSUE DISORDER [None]
  - DIABETIC NEUROPATHY [None]
  - DIFFICULTY IN WALKING [None]
  - DRUG EFFECT DECREASED [None]
  - ERYTHEMA [None]
  - GENERAL PHYSICAL HEALTH DETERIORATION [None]
  - INTERVERTEBRAL DISC DEGENERATION [None]
  - MENTAL DISORDER [None]
  - MYOCARDIAL INFARCTION [None]
  - PULMONARY OEDEMA [None]
  - SKIN EXFOLIATION [None]
  - SLEEP DISORDER [None]
